FAERS Safety Report 4488874-X (Version None)
Quarter: 2004Q4

REPORT INFORMATION
  Report Type: 
  Country: None (occurrence: None)
  Receive Date: 20041029
  Receipt Date: 20041013
  Transmission Date: 20050328
  Serious: Yes (Hospitalization)
  Sender: FDA-Public Use
  Company Number: AT-MERCK-0410AUT00054

PATIENT
  Sex: Female
  Weight: 70 kg

DRUGS (2)
  1. VIOXX [Suspect]
     Indication: INJURY
     Route: 048
     Dates: start: 20020901
  2. VIOXX [Suspect]
     Indication: ARTHRITIS
     Route: 048
     Dates: start: 20020901

REACTIONS (3)
  - CHEST DISCOMFORT [None]
  - OEDEMA PERIPHERAL [None]
  - PULMONARY INFARCTION [None]
